FAERS Safety Report 23709039 (Version 2)
Quarter: 2024Q2

REPORT INFORMATION
  Report Type: Spontaneous
  Country: US (occurrence: US)
  Receive Date: 20240404
  Receipt Date: 20240409
  Transmission Date: 20240715
  Serious: No
  Sender: FDA-Public Use
  Company Number: US-PFIZER INC-202400077684

PATIENT
  Age: 54 Year
  Sex: Female
  Weight: 61.96 kg

DRUGS (1)
  1. OXBRYTA [Suspect]
     Active Substance: VOXELOTOR
     Indication: Sickle cell disease
     Dosage: 500MG, 3 TABS DAILY
     Dates: start: 202307, end: 202402

REACTIONS (1)
  - Skin depigmentation [Recovering/Resolving]

NARRATIVE: CASE EVENT DATE: 20240101
